FAERS Safety Report 8996175 (Version 2)
Quarter: 2013Q2

REPORT INFORMATION
  Report Type: Report from Study
  Country: US (occurrence: US)
  Receive Date: 20130103
  Receipt Date: 20130507
  Transmission Date: 20140414
  Serious: Yes (Other)
  Sender: FDA-Public Use
  Company Number: PHEH2009US18691

PATIENT
  Age: 1 Year
  Sex: Female
  Weight: 15.2 kg

DRUGS (12)
  1. GLEEVEC [Suspect]
     Indication: ACUTE LYMPHOCYTIC LEUKAEMIA (IN REMISSION)
     Dosage: 150 MG, BID
     Route: 048
     Dates: start: 20090727
  2. GLEEVEC [Suspect]
     Dosage: 150 MG, QD (DAILY)
     Route: 048
     Dates: start: 20091005
  3. GLEEVEC [Suspect]
     Dosage: 200 MG, DAILY
     Route: 048
     Dates: start: 20090518
  4. GLEEVEC [Suspect]
     Dosage: 200 MG,ORALLY
     Route: 048
     Dates: start: 20100120
  5. BACTRIM [Concomitant]
     Indication: PROPHYLAXIS
     Dosage: 30 MG, BID
     Route: 048
     Dates: start: 200906
  6. ONDANSETRON [Concomitant]
     Dosage: UNK
     Route: 048
  7. ADVIL [Concomitant]
     Dosage: UNK UKN, UNK
  8. NEUPOGEN [Concomitant]
     Dosage: UNK UKN, UNK
  9. METHOTREXATE [Concomitant]
     Dosage: UNK UKN, UNK
  10. MERCAPTOPURINE [Concomitant]
     Dosage: UNK UKN, UNK
  11. MEPRON [Concomitant]
     Dosage: UNK UKN, UNK
  12. CHEMOTHERAPEUTICS [Concomitant]
     Dosage: UNK
     Dates: start: 20090219, end: 201203

REACTIONS (4)
  - Growth retardation [Not Recovered/Not Resolved]
  - Body height below normal [Not Recovered/Not Resolved]
  - Nausea [Not Recovered/Not Resolved]
  - Vomiting [Not Recovered/Not Resolved]
